FAERS Safety Report 17574736 (Version 5)
Quarter: 2020Q3

REPORT INFORMATION
  Report Type: Spontaneous
  Country: US (occurrence: US)
  Receive Date: 20200324
  Receipt Date: 20200915
  Transmission Date: 20201102
  Serious: No
  Sender: FDA-Public Use
  Company Number: US-BIOGEN-2018BI00535244

PATIENT
  Sex: Male

DRUGS (5)
  1. UBIDECARENONE [Concomitant]
     Active Substance: UBIDECARENONE
     Route: 065
  2. TECFIDERA [Suspect]
     Active Substance: DIMETHYL FUMARATE
     Dosage: STARTING DOSE
     Route: 050
     Dates: start: 20131101
  3. TECFIDERA [Suspect]
     Active Substance: DIMETHYL FUMARATE
     Dosage: MAINTENANCE DOSE
     Route: 050
  4. TECFIDERA [Suspect]
     Active Substance: DIMETHYL FUMARATE
     Route: 050
     Dates: start: 20200320
  5. TECFIDERA [Suspect]
     Active Substance: DIMETHYL FUMARATE
     Indication: MULTIPLE SCLEROSIS
     Dosage: STARTING DOSE
     Route: 050
     Dates: start: 20131011

REACTIONS (6)
  - Pharyngeal ulceration [Not Recovered/Not Resolved]
  - Product dose omission issue [Unknown]
  - Abdominal discomfort [Recovered/Resolved]
  - Accidental overdose [Recovered/Resolved]
  - Influenza [Unknown]
  - Flushing [Recovered/Resolved]
